FAERS Safety Report 16759357 (Version 1)
Quarter: 2019Q3

REPORT INFORMATION
  Report Type: Spontaneous
  Country: US (occurrence: US)
  Receive Date: 20190830
  Receipt Date: 20190830
  Transmission Date: 20191005
  Serious: No
  Sender: FDA-Public Use
  Company Number: US-MYLANLABS-2019M1078156

PATIENT
  Age: 38 Year
  Sex: Female
  Weight: 79 kg

DRUGS (4)
  1. ESTRADIOL TRANSDERMAL SYSTEM [Suspect]
     Active Substance: ESTRADIOL
     Dosage: WEAR TWO PATCHES FOR TWO DAYS
     Route: 062
     Dates: start: 20190727
  2. ESTRADIOL TRANSDERMAL SYSTEM [Suspect]
     Active Substance: ESTRADIOL
     Indication: ASSISTED FERTILISATION
     Dosage: WEAR ONE PATCH FOR TWO DAYS
     Route: 062
     Dates: start: 20190725
  3. ESTRADIOL TRANSDERMAL SYSTEM [Suspect]
     Active Substance: ESTRADIOL
     Dosage: WEAR THREE PATCHES FOR TWO DAYS
     Route: 062
     Dates: start: 20190730
  4. ESTRADIOL TRANSDERMAL SYSTEM [Suspect]
     Active Substance: ESTRADIOL
     Dosage: WEAR FOUR PATCHES
     Route: 062
     Dates: start: 20190731

REACTIONS (3)
  - Wrong technique in product usage process [Not Recovered/Not Resolved]
  - Off label use [Not Recovered/Not Resolved]
  - Product adhesion issue [Not Recovered/Not Resolved]

NARRATIVE: CASE EVENT DATE: 2019
